FAERS Safety Report 9214752 (Version 2)
Quarter: 2013Q2

REPORT INFORMATION
  Report Type: Spontaneous
  Country: JP (occurrence: JP)
  Receive Date: 20130405
  Receipt Date: 20130409
  Transmission Date: 20140414
  Serious: Yes (Death)
  Sender: FDA-Public Use
  Company Number: JP-UCBSA-082277

PATIENT
  Age: 89 Year
  Sex: Male

DRUGS (2)
  1. NEUPRO [Suspect]
     Dosage: UNKNOWN DOSE
     Route: 061
  2. RIVASTIGMINE [Concomitant]
     Dosage: UNKNOWN DOSE

REACTIONS (1)
  - Asthenia [Fatal]
